FAERS Safety Report 7402219-4 (Version None)
Quarter: 2011Q2

REPORT INFORMATION
  Report Type: 
  Country: None (occurrence: None)
  Receive Date: 20110408
  Receipt Date: 20110404
  Transmission Date: 20111010
  Serious: Yes (Hospitalization)
  Sender: FDA-Public Use
  Company Number: US-ELI_LILLY_AND_COMPANY-US201005000940

PATIENT
  Sex: Male

DRUGS (4)
  1. HUMALOG MIX 75/25 [Suspect]
     Indication: DIABETES MELLITUS
     Dosage: UNK, AS NEEDED
  2. HUMALOG MIX 75/25 [Suspect]
     Dosage: UNK, AS NEEDED
  3. HUMALOG [Suspect]
     Indication: DIABETES MELLITUS
     Dosage: UNK, AS NEEDED
  4. HUMALOG MIX 75/25 [Suspect]
     Dosage: 25 U, UNK
     Dates: start: 20100504, end: 20100504

REACTIONS (14)
  - AUTONOMIC NERVOUS SYSTEM IMBALANCE [None]
  - CEREBROVASCULAR ACCIDENT [None]
  - INGUINAL HERNIA [None]
  - ABASIA [None]
  - BLOOD GLUCOSE INCREASED [None]
  - LABILE HYPERTENSION [None]
  - CORONARY ARTERY DISEASE [None]
  - SICK SINUS SYNDROME [None]
  - DIABETIC NEUROPATHY [None]
  - APHASIA [None]
  - HEPATOBILIARY SCAN ABNORMAL [None]
  - DIVERTICULITIS [None]
  - MYASTHENIA GRAVIS [None]
  - PARKINSON'S DISEASE [None]
